FAERS Safety Report 13199335 (Version 2)
Quarter: 2017Q2

REPORT INFORMATION
  Report Type: Report from Study
  Country: None (occurrence: AT)
  Receive Date: 20170208
  Receipt Date: 20170426
  Transmission Date: 20170830
  Serious: Yes (Other)
  Sender: FDA-Public Use
  Company Number: AT-ABBVIE-17P-009-1865301-00

PATIENT
  Age: 65 Year
  Sex: Male

DRUGS (2)
  1. DUODOPA [Suspect]
     Active Substance: CARBIDOPA\LEVODOPA
     Indication: PARKINSON^S DISEASE
     Dosage: 24H-THERAPY:??MD:7ML??CR DAILY: 4.2ML/H??KR NOCTURNAL: 1.9ML/H??ED: 2ML
     Route: 050
     Dates: start: 20130814
  2. DUODOPA [Suspect]
     Active Substance: CARBIDOPA\LEVODOPA
     Route: 050

REACTIONS (3)
  - Stoma site induration [Not Recovered/Not Resolved]
  - Stoma site pain [Not Recovered/Not Resolved]
  - Prostate cancer [Unknown]

NARRATIVE: CASE EVENT DATE: 201704
